FAERS Safety Report 18186649 (Version 6)
Quarter: 2021Q4

REPORT INFORMATION
  Report Type: Spontaneous
  Country: US (occurrence: US)
  Receive Date: 20200824
  Receipt Date: 20211229
  Transmission Date: 20220303
  Serious: No
  Sender: FDA-Public Use
  Company Number: US-PFIZER INC-2020322847

PATIENT
  Age: 36 Year
  Sex: Female
  Weight: 61.224 kg

DRUGS (15)
  1. IBRANCE [Suspect]
     Active Substance: PALBOCICLIB
     Indication: Breast cancer female
     Dosage: 125 MG, CYCLIC (21 DAYS ON, 7 DAYS OFF)
     Route: 048
     Dates: start: 20200720
  2. IBRANCE [Suspect]
     Active Substance: PALBOCICLIB
     Indication: Breast cancer female
     Dosage: 100 MG, CYCLIC (1 DAILY FOR 21 DAYS)
     Route: 048
  3. IBRANCE [Suspect]
     Active Substance: PALBOCICLIB
     Dosage: 100 MG, CYCLIC (21 DAYS ON, 1 WEEK OFF)
     Route: 048
     Dates: start: 20200720
  4. IBRANCE [Suspect]
     Active Substance: PALBOCICLIB
     Dosage: 100 MG, CYCLIC (1 DAILY FOR 21 DAYS)
     Route: 048
     Dates: start: 20200720
  5. CALCIUM CARBONATE [Concomitant]
     Active Substance: CALCIUM CARBONATE
     Dosage: UNK
  6. FASLODEX [Concomitant]
     Active Substance: FULVESTRANT
     Dosage: UNK
  7. HYALURONIC ACID SODIUM [Concomitant]
     Dosage: UNK
  8. KELP [IODINE] [Concomitant]
     Dosage: UNK
  9. LETROZOLE [Concomitant]
     Active Substance: LETROZOLE
     Dosage: UNK
  10. NICAPRIN [Concomitant]
     Dosage: UNK
  11. VITAMIN B COMPLEX [Concomitant]
     Active Substance: CYANOCOBALAMIN\DEXPANTHENOL\NIACINAMIDE\PYRIDOXINE HYDROCHLORIDE\RIBOFLAVIN 5^-PHOSPHATE SODIUM\THIA
     Dosage: UNK
  12. THIAMINE HYDROCHLORIDE [Concomitant]
     Active Substance: THIAMINE HYDROCHLORIDE
     Dosage: UNK
  13. VITAMIN C [Concomitant]
     Active Substance: ASCORBIC ACID
     Dosage: UNK
  14. VITAMIN D3 [Concomitant]
     Active Substance: CHOLECALCIFEROL
     Dosage: UNK
  15. XGEVA [Concomitant]
     Active Substance: DENOSUMAB
     Dosage: UNK

REACTIONS (12)
  - Circumstance or information capable of leading to medication error [Unknown]
  - Product dose omission in error [Unknown]
  - Odynophagia [Unknown]
  - Breast pain [Unknown]
  - Abnormal faeces [Unknown]
  - Eating disorder [Unknown]
  - Oropharyngeal pain [Unknown]
  - Headache [Unknown]
  - Skin disorder [Unknown]
  - Alopecia [Unknown]
  - Dyschezia [Unknown]
  - Oral disorder [Unknown]

NARRATIVE: CASE EVENT DATE: 20200101
